FAERS Safety Report 6562623-3 (Version None)
Quarter: 2010Q1

REPORT INFORMATION
  Report Type: 
  Country: None (occurrence: None)
  Receive Date: 20100130
  Receipt Date: 20091223
  Transmission Date: 20100710
  Serious: No
  Sender: FDA-Public Use
  Company Number: US-ABBOTT-09P-163-0609464-00

PATIENT
  Sex: Male
  Weight: 94.432 kg

DRUGS (4)
  1. HUMIRA [Suspect]
     Indication: RHEUMATOID ARTHRITIS
     Dates: start: 20051117
  2. METFORMIN [Concomitant]
     Indication: DRUG USE FOR UNKNOWN INDICATION
  3. UNKNOWN DIABETES MEDICATION [Concomitant]
     Indication: DIABETES MELLITUS
     Route: 048
  4. UNKNOWN HYPERTENSION MEDICATION [Concomitant]
     Indication: HYPERTENSION

REACTIONS (7)
  - COUGH [None]
  - DECREASED APPETITE [None]
  - MUSCLE ATROPHY [None]
  - NAUSEA [None]
  - PARKINSON'S DISEASE [None]
  - RHEUMATOID ARTHRITIS [None]
  - WEIGHT DECREASED [None]
